FAERS Safety Report 9276311 (Version 2)
Quarter: 2013Q2

REPORT INFORMATION
  Report Type: Report from Study
  Country: US (occurrence: US)
  Receive Date: 20130507
  Receipt Date: 20130610
  Transmission Date: 20140414
  Serious: Yes (Death)
  Sender: FDA-Public Use
  Company Number: US-ASTRAZENECA-2013SE30669

PATIENT
  Age: 41 Year
  Sex: 0

DRUGS (3)
  1. SEROQUEL [Suspect]
     Route: 048
  2. COCAINE [Suspect]
     Route: 065
  3. HEROIN [Suspect]
     Route: 065

REACTIONS (1)
  - Overdose [Fatal]
